FAERS Safety Report 5423537-5 (Version None)
Quarter: 2007Q3

REPORT INFORMATION
  Report Type: 
  Country: None (occurrence: None)
  Receive Date: 20070821
  Receipt Date: 20070821
  Transmission Date: 20080115
  Serious: Yes (Hospitalization)
  Sender: FDA-Public Use
  Company Number: None

PATIENT
  Sex: Female
  Weight: 60.782 kg

DRUGS (2)
  1. TEMOZOLOMIDE [Suspect]
     Indication: MALIGNANT MELANOMA
     Dosage: 170MG, QD X 7, QO WEEK
     Dates: start: 20070228, end: 20070320
  2. SUNITIB MALATE, 25MG, PFIZER [Suspect]
     Indication: MALIGNANT MELANOMA
     Dosage: 25MG, D8 - 28, Q28D
     Dates: start: 20070307, end: 20070327

REACTIONS (3)
  - PLATELET COUNT DECREASED [None]
  - PNEUMONIA [None]
  - WHITE BLOOD CELL COUNT DECREASED [None]
